FAERS Safety Report 14822867 (Version 2)
Quarter: 2018Q2

REPORT INFORMATION
  Report Type: Spontaneous
  Country: US (occurrence: US)
  Receive Date: 20180427
  Receipt Date: 20180513
  Transmission Date: 20180711
  Serious: No
  Sender: FDA-Public Use
  Company Number: US-JNJFOC-20180401531

PATIENT
  Age: 39 Year
  Sex: Male
  Weight: 72.58 kg

DRUGS (3)
  1. RISPERDAL [Suspect]
     Active Substance: RISPERIDONE
     Indication: DELUSION
     Route: 048
     Dates: start: 20170405
  2. DEPAKOTE [Concomitant]
     Active Substance: DIVALPROEX SODIUM
     Route: 065
     Dates: start: 2017, end: 2018
  3. RISPERDAL [Suspect]
     Active Substance: RISPERIDONE
     Indication: DELUSION
     Dosage: 1MG, 1.5MG AND 2MG AT VARIOUS TIMES
     Route: 048
     Dates: end: 2016

REACTIONS (2)
  - Treatment noncompliance [Unknown]
  - Dystonia [Not Recovered/Not Resolved]

NARRATIVE: CASE EVENT DATE: 201803
